FAERS Safety Report 10263602 (Version 2)
Quarter: 2014Q3

REPORT INFORMATION
  Report Type: Report from Study
  Country: AR (occurrence: AR)
  Receive Date: 20140626
  Receipt Date: 20140714
  Transmission Date: 20150326
  Serious: Yes (Hospitalization, Other)
  Sender: FDA-Public Use
  Company Number: PHHY2014AR078908

PATIENT
  Age: 57 Year
  Sex: Female

DRUGS (2)
  1. TRILEPTAL [Suspect]
     Active Substance: OXCARBAZEPINE
     Indication: CONVULSION
     Dosage: 1 DF, DAILY
     Route: 048
     Dates: start: 2013, end: 201309
  2. TRILEPTAL [Suspect]
     Active Substance: OXCARBAZEPINE
     Indication: EYE MOVEMENT DISORDER

REACTIONS (1)
  - Myocardial infarction [Recovered/Resolved]

NARRATIVE: CASE EVENT DATE: 20140209
